FAERS Safety Report 5829089-X (Version None)
Quarter: 2008Q3

REPORT INFORMATION
  Report Type: 
  Country: None (occurrence: None)
  Receive Date: 20080731
  Receipt Date: 20080722
  Transmission Date: 20090109
  Serious: Yes (Hospitalization)
  Sender: FDA-Public Use
  Company Number: FR-TYCO HEALTHCARE/MALLINCKRODT-T200801215

PATIENT

DRUGS (1)
  1. OCTREOSCAN [Suspect]
     Indication: SOMATOSTATIN RECEPTOR SCAN
     Dosage: 168 MBQ, SINGLE
     Route: 042
     Dates: start: 20080709, end: 20080709

REACTIONS (2)
  - ABDOMINAL PAIN [None]
  - SENSORIMOTOR DISORDER [None]
